FAERS Safety Report 9580295 (Version 4)
Quarter: 2014Q3

REPORT INFORMATION
  Report Type: Report from Study
  Country: US (occurrence: US)
  Receive Date: 20131002
  Receipt Date: 20140722
  Transmission Date: 20150326
  Serious: Yes (Hospitalization, Other)
  Sender: FDA-Public Use
  Company Number: US-SA-2013SA095229

PATIENT
  Age: 40 Year
  Sex: Female
  Weight: 48 kg

DRUGS (3)
  1. AUBAGIO [Suspect]
     Active Substance: TERIFLUNOMIDE
     Indication: MULTIPLE SCLEROSIS
     Route: 048
     Dates: start: 20130314
  2. AUBAGIO [Suspect]
     Active Substance: TERIFLUNOMIDE
     Indication: MULTIPLE SCLEROSIS
     Route: 048
     Dates: start: 20130314
  3. TOPAMAX [Concomitant]
     Active Substance: TOPIRAMATE
     Indication: MIGRAINE
     Route: 065
     Dates: start: 200907

REACTIONS (10)
  - Metrorrhagia [Not Recovered/Not Resolved]
  - Amenorrhoea [Unknown]
  - Influenza like illness [Unknown]
  - Abdominal pain [Not Recovered/Not Resolved]
  - Haemorrhagic ovarian cyst [Unknown]
  - Abdominal distension [Not Recovered/Not Resolved]
  - Drug dose omission [Unknown]
  - Neuropathy peripheral [Recovering/Resolving]
  - Haemorrhagic ovarian cyst [Not Recovered/Not Resolved]
  - Fatigue [Recovering/Resolving]

NARRATIVE: CASE EVENT DATE: 201308
